FAERS Safety Report 15122251 (Version 4)
Quarter: 2020Q3

REPORT INFORMATION
  Report Type: Spontaneous
  Country: AT (occurrence: AT)
  Receive Date: 20180709
  Receipt Date: 20190402
  Transmission Date: 20201104
  Serious: Yes (Death, Hospitalization, Other)
  Sender: FDA-Public Use
  Company Number: AT-NAPPMUNDI-GBR-2018-0057418

PATIENT
  Age: 80 Year
  Sex: Female

DRUGS (56)
  1. TRAMADOL HYDROCHLORIDE. [Interacting]
     Active Substance: TRAMADOL HYDROCHLORIDE
     Indication: PAIN
     Dosage: 200 MG, DAILY
     Route: 065
  2. HYDROMORPHONE HYDROCHLORIDE. [Suspect]
     Active Substance: HYDROMORPHONE HYDROCHLORIDE
     Indication: PAIN
     Dosage: 4 MG, DAILY (4 MG, AM (ONCE IN THE MORNING))
     Route: 065
  3. SERTRALINE [Suspect]
     Active Substance: SERTRALINE HYDROCHLORIDE
     Indication: DEPRESSION
     Dosage: 50 MG, AM (ONCE IN THE MORNING)
     Route: 065
  4. FLUTICASONE. [Interacting]
     Active Substance: FLUTICASONE
     Indication: CHRONIC OBSTRUCTIVE PULMONARY DISEASE
     Dosage: 460 MCG, Q12H (460 UG, BID, PUFFS)
     Route: 055
     Dates: start: 20151123
  5. ACETYLCYSTEINE. [Interacting]
     Active Substance: ACETYLCYSTEINE
     Indication: CHRONIC OBSTRUCTIVE PULMONARY DISEASE
     Dosage: 600 MG, DAILY
     Route: 065
  6. LEVOTHYROXINE. [Interacting]
     Active Substance: LEVOTHYROXINE
     Indication: HYPOTHYROIDISM
     Dosage: 125 MG, DAILY (HALF DOSE ONCE IN THE MORNING)
     Route: 065
  7. VITAMIN D                          /00107901/ [Interacting]
     Active Substance: ERGOCALCIFEROL
     Dosage: 16000 IU, WEEKLY (16000 IU, QW)
     Route: 065
  8. MORPHINE HYDROCHLORIDE [Concomitant]
     Active Substance: MORPHINE HYDROCHLORIDE
     Indication: PRODUCT USED FOR UNKNOWN INDICATION
     Route: 065
  9. DULOXETINE HYDROCHLORIDE. [Interacting]
     Active Substance: DULOXETINE HYDROCHLORIDE
     Indication: PAIN
     Dosage: 600 MG, DAILY (PER DAY)
     Route: 065
  10. ACETAZOLAMIDE. [Suspect]
     Active Substance: ACETAZOLAMIDE
     Indication: HYPERCAPNIA
     Dosage: 36 MG, UNK (36 MG, DRUG INTERVAL DOSAGE UNIT NUMBER 1 DAY)
     Route: 065
  11. BENSERAZIDE [Suspect]
     Active Substance: BENSERAZIDE
     Indication: RESTLESS LEGS SYNDROME
     Dosage: 25 MG, DAILY
     Route: 065
  12. IBANDRONIC ACID. [Interacting]
     Active Substance: IBANDRONIC ACID
     Indication: OSTEOPOROSIS
     Dosage: 3 MG, EVERY 3 MONTHS
     Route: 065
  13. FUROSEMIDE. [Concomitant]
     Active Substance: FUROSEMIDE
     Indication: PRODUCT USED FOR UNKNOWN INDICATION
     Dosage: 40 MG, UNK
     Route: 065
  14. GABAPENTIN. [Suspect]
     Active Substance: GABAPENTIN
     Indication: PAIN
     Dosage: 600 MG, DAILY (600 MG, BID)
     Route: 065
  15. BISOPROLOL [Suspect]
     Active Substance: BISOPROLOL
     Indication: CORONARY ARTERY DISEASE
     Dosage: 2.5 MG, Q12H (2.5 MG, (IN TWO DIVIDED DOSES, PNE IN THE MORNING AND ONE AT NIGHT))
     Route: 065
  16. ACETYLSALICYLIC ACID [Interacting]
     Active Substance: ASPIRIN
     Indication: CORONARY ARTERY DISEASE
     Dosage: 100 MG, DAILY
     Route: 065
  17. PREDNISONE. [Interacting]
     Active Substance: PREDNISONE
     Dosage: 25 MG, DAILY (PER DAY)
     Route: 065
  18. SALMETEROL [Interacting]
     Active Substance: SALMETEROL
     Indication: CHRONIC OBSTRUCTIVE PULMONARY DISEASE
     Dosage: 47 MCG, Q12H (47 UG, PUFFS (2 DOSAGE FORMS,2?0?2))
     Route: 055
  19. FLUTICASONE. [Interacting]
     Active Substance: FLUTICASONE
     Dosage: 920 MCG, DAILY
     Route: 055
  20. FENOTEROL [Interacting]
     Active Substance: FENOTEROL
     Indication: CHRONIC OBSTRUCTIVE PULMONARY DISEASE
     Dosage: 0.05 MG, Q12H (0.05 MG, MAX 4*2 PUFFS AS NEEDED IN CASE OF DYSPNOEA (AS REQUIRED))
     Route: 055
  21. DICLOFENAC [Interacting]
     Active Substance: DICLOFENAC
     Indication: PAIN
     Dosage: 150 MG, DAILY (150 MG, DRUG INTERVAL DOSAGE UNIT NUMBER 1 DAY)
     Route: 065
  22. VITAMIN D                          /00107901/ [Interacting]
     Active Substance: ERGOCALCIFEROL
     Indication: VITAMIN D DEFICIENCY
     Dosage: 16000 IU, WEEKLY
     Route: 065
  23. OXYGEN. [Interacting]
     Active Substance: OXYGEN
     Indication: HYPOXIA
     Dosage: UNK
     Route: 065
  24. IPRATROPIUM [Concomitant]
     Active Substance: IPRATROPIUM
     Indication: CHRONIC OBSTRUCTIVE PULMONARY DISEASE
     Dosage: 0.02 MG, MAX 4X2 PUFFS AS NEEDED IN CASE OF DYSPNOEA (AS REQUIRED)
     Route: 065
  25. DULOXETINE HYDROCHLORIDE. [Interacting]
     Active Substance: DULOXETINE HYDROCHLORIDE
     Indication: DEPRESSION
     Dosage: 60 MG, Q12H (60 MG, BID)
     Route: 065
  26. SERTRALINE [Suspect]
     Active Substance: SERTRALINE HYDROCHLORIDE
     Indication: PANIC ATTACK
     Dosage: UNK
     Route: 065
  27. ACETAZOLAMIDE. [Suspect]
     Active Substance: ACETAZOLAMIDE
     Dosage: 250 MG, WEEKLY
     Route: 065
     Dates: start: 20151123
  28. RISPERIDONE. [Suspect]
     Active Substance: RISPERIDONE
     Indication: PRODUCT USED FOR UNKNOWN INDICATION
     Dosage: 1 MG, DAILY (1 MG, NOCTE (HALF DOSE AT NIGHT))
     Route: 065
  29. ALPRAZOLAM. [Suspect]
     Active Substance: ALPRAZOLAM
     Indication: DYSPNOEA
     Dosage: 0.5 MG, Q12H (0.5 MG, IN 2 DIVIDED DOSES,1 IN MORNING AND 1 IN NIGHT)
     Route: 065
  30. TIOTROPIUM [Interacting]
     Active Substance: TIOTROPIUM
     Indication: CHRONIC OBSTRUCTIVE PULMONARY DISEASE
     Dosage: 18 MCG, DAILY
     Route: 055
  31. OXYGEN. [Interacting]
     Active Substance: OXYGEN
     Indication: CHRONIC OBSTRUCTIVE PULMONARY DISEASE
     Dosage: UNK
     Route: 065
  32. METHYLPREDNISOLONE. [Interacting]
     Active Substance: METHYLPREDNISOLONE
     Indication: PRODUCT USED FOR UNKNOWN INDICATION
     Dosage: 64 MG, DAILY
     Route: 042
  33. HESPERIDIN [Concomitant]
     Active Substance: HESPERIDIN
     Indication: PERIPHERAL VENOUS DISEASE
     Dosage: 50 MG, DAILY (50 MG, QD AT PATIENTS INSISTENCE)
     Route: 065
  34. IBANDRONIC ACID. [Interacting]
     Active Substance: IBANDRONIC ACID
     Indication: PERIPHERAL VENOUS DISEASE
     Dosage: UNK
     Route: 065
  35. BISOPROLOL FUMARATE. [Suspect]
     Active Substance: BISOPROLOL FUMARATE
     Indication: PRODUCT USED FOR UNKNOWN INDICATION
     Dosage: 3 MG, UNK (3 MG, DRUG INTERVAL DOSAGE UNIT NUMBER 1 DAY)
     Route: 065
  36. PIPERACILLIN/TAZOBACTAM [Concomitant]
     Active Substance: PIPERACILLIN SODIUM\TAZOBACTAM SODIUM
     Indication: PRODUCT USED FOR UNKNOWN INDICATION
  37. BENSERAZIDE [Concomitant]
     Active Substance: BENSERAZIDE
     Indication: HYPOTHYROIDISM
     Dosage: 25 MG, UNK (25 MG, DRUG INTERVAL DOSAGE UNIT)
     Route: 065
  38. ALPRAZOLAM. [Suspect]
     Active Substance: ALPRAZOLAM
     Indication: FEAR
     Dosage: 0.5 MG, DAILY
     Route: 065
  39. SPIRIVA [Interacting]
     Active Substance: TIOTROPIUM BROMIDE MONOHYDRATE
     Indication: CHRONIC OBSTRUCTIVE PULMONARY DISEASE
     Dosage: 18 MCG, DAILY (PUFF (1 DOSAGE) INHALATION POWDER, HARD CAPSULE)
     Route: 065
     Dates: start: 20151123
  40. DICLOFENAC [Interacting]
     Active Substance: DICLOFENAC
     Dosage: 75 MG, BID
     Route: 065
  41. DIOSMIN [Suspect]
     Active Substance: DIOSMIN
     Indication: PERIPHERAL VENOUS DISEASE
     Dosage: 450 MG, DAILY, AT PATIENTS INSISTENCE
     Route: 065
  42. OXYGEN. [Interacting]
     Active Substance: OXYGEN
     Dosage: 2 L, MINUTE (2L/MIN CONTINUOSLY)
     Route: 065
  43. DIPHENHYDRAMINE. [Concomitant]
     Active Substance: DIPHENHYDRAMINE
     Indication: PRODUCT USED FOR UNKNOWN INDICATION
     Dosage: UNK
     Route: 065
  44. NON?PMN THEOPHYLLINE [Suspect]
     Active Substance: THEOPHYLLINE ANHYDROUS
     Indication: CHRONIC OBSTRUCTIVE PULMONARY DISEASE
     Dosage: 200 MG, Q12H (200 MG, BID)
     Route: 065
  45. PRAMIPEXOLE DIHYDROCHLORIDE. [Interacting]
     Active Substance: PRAMIPEXOLE DIHYDROCHLORIDE
     Indication: RESTLESS LEGS SYNDROME
     Dosage: 2.1 MG, DAILY
     Route: 065
  46. ACETAZOLAMIDE. [Suspect]
     Active Substance: ACETAZOLAMIDE
     Indication: ALKALOSIS
     Dosage: 50 MG, DAILY (50 MG, AM (ONCE IN THE MORNING))
     Route: 065
  47. LEVODOPA [Interacting]
     Active Substance: LEVODOPA
     Indication: RESTLESS LEGS SYNDROME
     Dosage: 100 MG, DAILY (100 MG, NOCTE (ONCE AT NIGHT))
     Route: 065
  48. PREDNISONE. [Interacting]
     Active Substance: PREDNISONE
     Indication: CHRONIC OBSTRUCTIVE PULMONARY DISEASE
     Dosage: 5 MG, DAILY
     Route: 065
  49. DICLOFENAC [Interacting]
     Active Substance: DICLOFENAC
     Dosage: 75 MG, Q12H (75 MG, MAX 2*1 AS NEEDED IN CASE OF PAIN (AS REQUIRED)
     Route: 065
  50. LEVOTHYROXINE. [Interacting]
     Active Substance: LEVOTHYROXINE
     Dosage: 75 MCG, DAILY
     Route: 065
  51. ATORVASTATIN [Interacting]
     Active Substance: ATORVASTATIN
     Indication: HYPERCHOLESTEROLAEMIA
     Dosage: 40 MG, DAILY, SUPERFLUOUS IN HINDSIGHT
     Route: 065
  52. CLOPIDOGREL BISULFATE. [Suspect]
     Active Substance: CLOPIDOGREL BISULFATE
     Indication: CORONARY ARTERY DISEASE
     Dosage: 75 MG, DAILY (75 MG, QD)
     Route: 065
  53. SALMETEROL [Interacting]
     Active Substance: SALMETEROL
     Dosage: 47 G, UNK (47 G, DRUG INTERVAL DOSAGE UNIT NUMBER 12 HOUR)
     Route: 055
  54. OMEPRAZOLE. [Suspect]
     Active Substance: OMEPRAZOLE
     Indication: GASTRITIS
     Dosage: 40 MG, Q12H (40 MG, BID)
     Route: 065
  55. LISALGIL [Interacting]
     Active Substance: METAMIZOLE SODIUM
     Indication: PRODUCT USED FOR UNKNOWN INDICATION
     Dosage: 25 MG, BID
     Route: 042
  56. ALGELDRATE [Concomitant]
     Active Substance: ALGELDRATE
     Indication: GASTROOESOPHAGEAL REFLUX DISEASE
     Dosage: 340 MG, (AS NEEDED, MAX 2*1 (AS REQUIRED))
     Route: 065

REACTIONS (20)
  - Lung disorder [Fatal]
  - Erysipelas [Unknown]
  - Prescribed underdose [Unknown]
  - Chronic obstructive pulmonary disease [Fatal]
  - Arthralgia [Fatal]
  - Chronic obstructive pulmonary disease [Unknown]
  - Back pain [Fatal]
  - Urinary tract infection [Fatal]
  - Somnolence [Fatal]
  - Drug interaction [Fatal]
  - Acute respiratory failure [Fatal]
  - Hypercapnia [Fatal]
  - Delirium [Fatal]
  - Clostridium difficile colitis [Fatal]
  - Pain [Fatal]
  - Arthralgia [Unknown]
  - Urinary tract infection [Unknown]
  - Off label use [Unknown]
  - Erysipelas [Fatal]
  - Acute myocardial infarction [Fatal]

NARRATIVE: CASE EVENT DATE: 201510
